FAERS Safety Report 13427068 (Version 1)
Quarter: 2017Q2

REPORT INFORMATION
  Report Type: Spontaneous
  Country: US (occurrence: US)
  Receive Date: 20170411
  Receipt Date: 20170411
  Transmission Date: 20170830
  Serious: No
  Sender: FDA-Public Use
  Company Number: US-TAKEDA-2017MPI003228

PATIENT
  Sex: Female
  Weight: 44 kg

DRUGS (2)
  1. DARZALEX [Suspect]
     Active Substance: DARATUMUMAB
     Indication: PLASMA CELL MYELOMA
     Dosage: UNK, 2/WEEK
     Route: 042
     Dates: start: 201603
  2. VELCADE [Suspect]
     Active Substance: BORTEZOMIB
     Indication: PLASMA CELL MYELOMA
     Dosage: UNK
     Route: 065
     Dates: start: 201506

REACTIONS (4)
  - Blood creatinine abnormal [Recovering/Resolving]
  - Weight decreased [Unknown]
  - Anaemia [Unknown]
  - Drug dose omission [Unknown]
